FAERS Safety Report 7236248-0 (Version None)
Quarter: 2011Q1

REPORT INFORMATION
  Report Type: 
  Country: None (occurrence: None)
  Receive Date: 20110120
  Receipt Date: 20110113
  Transmission Date: 20110831
  Serious: Yes (Hospitalization)
  Sender: FDA-Public Use
  Company Number: AU-MERCK-1101USA01443

PATIENT
  Age: 99 Year
  Sex: Female

DRUGS (8)
  1. MIRTAZAPINE [Concomitant]
     Route: 065
  2. NEXIUM [Concomitant]
     Route: 065
  3. JANUMET [Suspect]
     Route: 048
     Dates: start: 20100430, end: 20100530
  4. PLAVIX [Concomitant]
     Route: 065
  5. MOBIC [Concomitant]
     Route: 065
  6. APO PERINDO [Concomitant]
     Route: 065
  7. SIMVAR [Concomitant]
     Route: 065
  8. DIAMICRON [Concomitant]
     Route: 065

REACTIONS (2)
  - RENAL FAILURE ACUTE [None]
  - SPEECH DISORDER [None]
